FAERS Safety Report 8244183-4 (Version None)
Quarter: 2012Q1

REPORT INFORMATION
  Report Type: 
  Country: None (occurrence: None)
  Receive Date: 20120329
  Receipt Date: 20120322
  Transmission Date: 20120608
  Serious: Yes (Hospitalization, Other)
  Sender: FDA-Public Use
  Company Number: JP-MERCK-1203USA02503

PATIENT
  Age: 46 Year
  Sex: Male

DRUGS (1)
  1. FAMOTIDINE [Suspect]
     Route: 048

REACTIONS (3)
  - NEUTROPHIL COUNT DECREASED [None]
  - EOSINOPHIL COUNT INCREASED [None]
  - WHITE BLOOD CELL COUNT DECREASED [None]
